FAERS Safety Report 18533976 (Version 1)
Quarter: 2020Q4

REPORT INFORMATION
  Report Type: Spontaneous
  Country: US (occurrence: US)
  Receive Date: 20201123
  Receipt Date: 20201123
  Transmission Date: 20210114
  Serious: Yes (Other)
  Sender: FDA-Public Use
  Company Number: US-OCULAR THERAPEUTIX-2020OCX00029

PATIENT
  Age: 76 Year
  Sex: Female
  Weight: 57.14 kg

DRUGS (3)
  1. DEXTENZA [Suspect]
     Active Substance: DEXAMETHASONE
     Indication: CATARACT OPERATION
     Dosage: UNK, INSERTED THROUGH LEFT PUNCTUM
     Dates: start: 20200826
  2. DEXTENZA [Suspect]
     Active Substance: DEXAMETHASONE
     Indication: INTRAOCULAR LENS IMPLANT
  3. VIGAMOX [Concomitant]
     Active Substance: MOXIFLOXACIN HYDROCHLORIDE
     Dosage: UNK, 4X/DAY IN LEFT EYE
     Dates: start: 20200824, end: 20200902

REACTIONS (6)
  - Visual acuity reduced [Unknown]
  - Lenticular opacities [Unknown]
  - Corneal disorder [Recovered/Resolved]
  - Cystoid macular oedema [Not Recovered/Not Resolved]
  - Scar [Recovered/Resolved]
  - Eye inflammation [Recovered/Resolved]

NARRATIVE: CASE EVENT DATE: 2020
